FAERS Safety Report 16726758 (Version 1)
Quarter: 2019Q3

REPORT INFORMATION
  Report Type: Spontaneous
  Country: BR (occurrence: BR)
  Receive Date: 20190821
  Receipt Date: 20190821
  Transmission Date: 20191005
  Serious: Yes (Other)
  Sender: FDA-Public Use
  Company Number: BR-GE HEALTHCARE LIFE SCIENCES-2019CSU004214

PATIENT

DRUGS (5)
  1. OMNISCAN [Suspect]
     Active Substance: GADODIAMIDE
     Indication: MIGRAINE
  2. OMNISCAN [Suspect]
     Active Substance: GADODIAMIDE
     Indication: MALAISE
  3. OMNISCAN [Suspect]
     Active Substance: GADODIAMIDE
     Indication: NUCLEAR MAGNETIC RESONANCE IMAGING BRAIN
     Dosage: 10 ML, MANUAL; SINGLE
     Route: 042
     Dates: start: 20190809, end: 20190809
  4. OMNISCAN [Suspect]
     Active Substance: GADODIAMIDE
     Indication: NAUSEA
  5. OMNISCAN [Suspect]
     Active Substance: GADODIAMIDE
     Indication: SYNCOPE

REACTIONS (6)
  - Pruritus [Recovered/Resolved]
  - Flushing [Recovered/Resolved]
  - Oedema [Recovered/Resolved]
  - Paraesthesia oral [Recovered/Resolved]
  - Papule [Recovered/Resolved]
  - Dyspnoea [Recovered/Resolved]

NARRATIVE: CASE EVENT DATE: 20190809
